FAERS Safety Report 5026473-1 (Version None)
Quarter: 2006Q2

REPORT INFORMATION
  Report Type: 
  Country: None (occurrence: None)
  Receive Date: 20060613
  Receipt Date: 20060613
  Transmission Date: 20061013
  Serious: Yes (Hospitalization)
  Sender: FDA-Public Use
  Company Number: None

PATIENT
  Age: 62 Year
  Sex: Male
  Weight: 80 kg

DRUGS (9)
  1. WARFARIN SODIUM [Suspect]
     Indication: THROMBOSIS PROPHYLAXIS
     Dosage: 5 MG DAILY PO
     Route: 048
     Dates: start: 20060514, end: 20060516
  2. LOVENOX [Suspect]
     Indication: ANTICOAGULANT THERAPY
     Dosage: 120 MG DAILY SQ
     Route: 058
     Dates: start: 20060514, end: 20060516
  3. CYANOCOBALAMIN [Concomitant]
  4. FERROUS SULFATE TAB [Concomitant]
  5. FINASTERIDE [Concomitant]
  6. FUROSEMIDE [Concomitant]
  7. LOVASTATIN [Concomitant]
  8. OMEPRAZOLE [Concomitant]
  9. NITROFURANTOIN [Concomitant]

REACTIONS (5)
  - BIOPSY BLADDER [None]
  - HAEMATURIA [None]
  - HAEMORRHAGE [None]
  - POST PROCEDURAL HAEMORRHAGE [None]
  - STENT PLACEMENT [None]
